FAERS Safety Report 25003604 (Version 1)
Quarter: 2025Q1

REPORT INFORMATION
  Report Type: Spontaneous
  Country: US (occurrence: US)
  Receive Date: 20250224
  Receipt Date: 20250224
  Transmission Date: 20250409
  Serious: Yes (Hospitalization)
  Sender: MYLAN
  Company Number: US-MYLANLABS-2025M1014251

PATIENT
  Age: 60 Year
  Sex: Male

DRUGS (6)
  1. METHOTREXATE [Suspect]
     Active Substance: METHOTREXATE
     Indication: Acute disseminated encephalomyelitis
  2. AZACITIDINE [Concomitant]
     Active Substance: AZACITIDINE
     Indication: Acute myeloid leukaemia
  3. VENETOCLAX [Concomitant]
     Active Substance: VENETOCLAX
     Indication: Acute myeloid leukaemia
  4. CLOBETASOL [Concomitant]
     Active Substance: CLOBETASOL
     Indication: Epidermal necrosis
     Dosage: UNK UNK, BID
  5. CYTARABINE [Concomitant]
     Active Substance: CYTARABINE
     Indication: Acute disseminated encephalomyelitis
  6. HYDROCORTISONE [Concomitant]
     Active Substance: HYDROCORTISONE
     Indication: Acute disseminated encephalomyelitis

REACTIONS (1)
  - Epidermal necrosis [Unknown]
